FAERS Safety Report 4711593-9 (Version None)
Quarter: 2005Q3

REPORT INFORMATION
  Report Type: 
  Country: None (occurrence: None)
  Receive Date: 20050712
  Receipt Date: 20050630
  Transmission Date: 20060218
  Serious: Yes (Other)
  Sender: FDA-Public Use
  Company Number: US-JNJFOC-20050700164

PATIENT
  Age: 72 Year
  Sex: Female

DRUGS (4)
  1. TYLENOL (CAPLET) [Suspect]
     Route: 049
  2. TYLENOL (CAPLET) [Suspect]
     Indication: ARTHRITIS
     Route: 049
  3. GLUCOTROL XL [Concomitant]
  4. VERAPAMIL [Concomitant]

REACTIONS (2)
  - BLOOD URINE PRESENT [None]
  - POLLAKIURIA [None]
